FAERS Safety Report 8956071 (Version 1)
Quarter: 2012Q4

REPORT INFORMATION
  Report Type: 
  Country: JP (occurrence: JP)
  Receive Date: 20121210
  Receipt Date: 20121210
  Transmission Date: 20130627
  Serious: Yes (Other)
  Sender: FDA-Public Use
  Company Number: JP-ASTRAZENECA-2012SE90781

PATIENT
  Age: 50 Year
  Sex: Female

DRUGS (8)
  1. ROPIVACAINE [Suspect]
     Indication: EPIDURAL ANAESTHESIA
     Dosage: 4 mg/hr
     Route: 008
  2. ROPIVACAINE [Suspect]
     Indication: PROCEDURAL PAIN
     Dosage: 4 mg/hr
     Route: 008
  3. FENTANYL [Suspect]
     Indication: EPIDURAL ANAESTHESIA
     Dosage: 6 uG/hr
     Route: 008
  4. FENTANYL [Suspect]
     Indication: PROCEDURAL PAIN
     Dosage: 6 uG/hr
     Route: 008
  5. REMIFENTANYL [Suspect]
     Indication: MAINTENANCE OF ANAESTHESIA
  6. SEVOFLURANE [Suspect]
     Indication: MAINTENANCE OF ANAESTHESIA
  7. THAIMYLAL [Suspect]
     Indication: GENERAL ANAESTHESIA
  8. ROCURONIUM [Suspect]
     Indication: MAINTENANCE OF ANAESTHESIA

REACTIONS (2)
  - Atrioventricular block second degree [Recovered/Resolved]
  - Syncope [Recovered/Resolved]
